FAERS Safety Report 19005504 (Version 1)
Quarter: 2021Q1

REPORT INFORMATION
  Report Type: Report from Study
  Country: US (occurrence: US)
  Receive Date: 20210313
  Receipt Date: 20210313
  Transmission Date: 20210420
  Serious: Yes (Death, Other)
  Sender: FDA-Public Use
  Company Number: NVSC2020US292901

PATIENT
  Age: 20 Year
  Sex: Male

DRUGS (3)
  1. FLUDARABINE [Concomitant]
     Active Substance: FLUDARABINE PHOSPHATE
     Indication: CHEMOTHERAPY
     Dosage: UNK
     Route: 065
  2. CYCLOPHOSPHAMIDE. [Concomitant]
     Active Substance: CYCLOPHOSPHAMIDE
     Indication: CHEMOTHERAPY
     Dosage: UNK
     Route: 065
  3. KYMRIAH [Suspect]
     Active Substance: TISAGENLECLEUCEL
     Indication: LYMPHOCYTIC LEUKAEMIA
     Dosage: ONCE/SINGLE
     Route: 041
     Dates: start: 20200203

REACTIONS (16)
  - White blood cell count decreased [Unknown]
  - Haemoglobin decreased [Unknown]
  - Dysgraphia [Unknown]
  - Pyrexia [Unknown]
  - Hypotension [Unknown]
  - Hypoxia [Unknown]
  - Platelet count decreased [Unknown]
  - Neurotoxicity [Recovered/Resolved]
  - Haematocrit decreased [Unknown]
  - Hypogammaglobulinaemia [Recovered/Resolved]
  - Neutrophil count decreased [Unknown]
  - Alternaria infection [Unknown]
  - Cytokine release syndrome [Recovered/Resolved]
  - Disturbance in attention [Unknown]
  - Acute lymphocytic leukaemia recurrent [Fatal]
  - Lymphocyte count decreased [Unknown]
